FAERS Safety Report 8339655-8 (Version None)
Quarter: 2012Q2

REPORT INFORMATION
  Report Type: 
  Country: None (occurrence: None)
  Receive Date: 20120507
  Receipt Date: 20120503
  Transmission Date: 20120825
  Serious: Yes (Death)
  Sender: FDA-Public Use
  Company Number: PHFR2011GB05679

PATIENT
  Sex: Male

DRUGS (1)
  1. CLOZARIL [Suspect]
     Indication: SCHIZOPHRENIA
     Dosage: 550 MG/DAY
     Route: 048
     Dates: start: 20070912

REACTIONS (4)
  - CHOKING [None]
  - ASPHYXIA [None]
  - ASPIRATION [None]
  - CARDIO-RESPIRATORY ARREST [None]
